FAERS Safety Report 24292133 (Version 1)
Quarter: 2024Q3

REPORT INFORMATION
  Report Type: Spontaneous
  Country: US (occurrence: None)
  Receive Date: 20240906
  Receipt Date: 20240906
  Transmission Date: 20241016
  Serious: No
  Sender: DOMPE FARMACEUTICI
  Company Number: US-FARMAPROD-202307-2140

PATIENT
  Sex: Female

DRUGS (15)
  1. OXERVATE [Suspect]
     Active Substance: CENEGERMIN-BKBJ
     Indication: Neurotrophic keratopathy
     Route: 047
     Dates: start: 20230605
  2. OXERVATE [Suspect]
     Active Substance: CENEGERMIN-BKBJ
     Indication: Neurotrophic keratopathy
  3. LEXAPRO [Concomitant]
     Active Substance: ESCITALOPRAM OXALATE
  4. OMEGA 3 [Concomitant]
     Active Substance: CAPSAICIN
     Dosage: 684-1200MG
  5. ALPHA LIPOIC ACID [Concomitant]
     Active Substance: .ALPHA.-LIPOIC ACID
  6. CURCUMIN [Concomitant]
     Active Substance: CURCUMIN
  7. UNSPECIFIED INGREDIENT [Concomitant]
     Active Substance: UNSPECIFIED INGREDIENT
  8. ALBUTEROL SULFATE [Concomitant]
     Active Substance: ALBUTEROL SULFATE
     Dosage: HYDROFLUOROALKANE
  9. ANORO ELLIPTA [Concomitant]
     Active Substance: UMECLIDINIUM BROMIDE\VILANTEROL TRIFENATATE
     Dosage: 62.5-25MICROGRAM BLISTER WITH DEVICE
  10. LEVOTHYROXINE SODIUM [Concomitant]
     Active Substance: LEVOTHYROXINE SODIUM
  11. GENTEAL NIGHT-TIME PM [Concomitant]
     Active Substance: MINERAL OIL\PETROLATUM
     Dosage: 3 %-94 %
  12. TEARS LUBRICANT [Concomitant]
     Active Substance: GLYCERIN\HYPROMELLOSES\POLYETHYLENE GLYCOL 400
  13. RHOPRESSA [Concomitant]
     Active Substance: NETARSUDIL MESYLATE
  14. VYZULTA [Concomitant]
     Active Substance: LATANOPROSTENE BUNOD
  15. BRIMONIDINE TARTRATE [Concomitant]
     Active Substance: BRIMONIDINE TARTRATE

REACTIONS (1)
  - Eye pain [Not Recovered/Not Resolved]
